FAERS Safety Report 14035367 (Version 2)
Quarter: 2017Q4

REPORT INFORMATION
  Report Type: Spontaneous
  Country: US (occurrence: US)
  Receive Date: 20171003
  Receipt Date: 20171005
  Transmission Date: 20180321
  Serious: No
  Sender: FDA-Public Use
  Company Number: US-BAYER-2017-189208

PATIENT
  Age: 93 Year
  Sex: Female
  Weight: 51.7 kg

DRUGS (1)
  1. MIRALAX [Suspect]
     Active Substance: POLYETHYLENE GLYCOL 3350
     Indication: GASTRIC DISORDER
     Dosage: UNK UNK, QD ON MY COFFEE
     Route: 048
     Dates: start: 201708

REACTIONS (7)
  - Expired product administered [None]
  - Off label use [Unknown]
  - Drug administration error [Unknown]
  - Circumstance or information capable of leading to medication error [Unknown]
  - Unevaluable event [None]
  - Product use in unapproved indication [Unknown]
  - Product use issue [Unknown]

NARRATIVE: CASE EVENT DATE: 201708
